FAERS Safety Report 23994547 (Version 1)
Quarter: 2024Q2

REPORT INFORMATION
  Report Type: Report from Study
  Country: CL (occurrence: CL)
  Receive Date: 20240620
  Receipt Date: 20240620
  Transmission Date: 20240716
  Serious: Yes (Hospitalization)
  Sender: FDA-Public Use
  Company Number: CL-SANDOZ-SDZ2024CL059230

PATIENT
  Sex: Male

DRUGS (1)
  1. OMNITROPE [Suspect]
     Active Substance: SOMATROPIN
     Indication: Growth hormone deficiency
     Dosage: 3 IU, DAILY
     Route: 058
     Dates: start: 20240110

REACTIONS (3)
  - Short-bowel syndrome [Recovering/Resolving]
  - Functional gastrointestinal disorder [Recovering/Resolving]
  - Weight decreased [Recovering/Resolving]
